FAERS Safety Report 22274562 (Version 1)
Quarter: 2023Q2

REPORT INFORMATION
  Report Type: Spontaneous
  Country: US (occurrence: None)
  Receive Date: 20230501
  Receipt Date: 20230501
  Transmission Date: 20230721
  Serious: Yes (Hospitalization)
  Sender: FDA-Public Use
  Company Number: None

PATIENT
  Sex: Female

DRUGS (3)
  1. MYCOPHENOLATE MOFETIL [Suspect]
     Active Substance: MYCOPHENOLATE MOFETIL
     Dosage: FREQUENCY : DAILY;?
     Route: 048
     Dates: start: 202108
  2. UPTRAVI [Suspect]
     Active Substance: SELEXIPAG
  3. TADALAFIL [Suspect]
     Active Substance: TADALAFIL

REACTIONS (7)
  - Dialysis [None]
  - COVID-19 [None]
  - Procedural complication [None]
  - Arterial injury [None]
  - Iatrogenic injury [None]
  - Postoperative wound infection [None]
  - Therapy interrupted [None]
